FAERS Safety Report 12600510 (Version 2)
Quarter: 2016Q3

REPORT INFORMATION
  Report Type: Report from Study
  Country: KR (occurrence: KR)
  Receive Date: 20160727
  Receipt Date: 20160811
  Transmission Date: 20161109
  Serious: Yes (Hospitalization)
  Sender: FDA-Public Use
  Company Number: KR-ASTRAZENECA-2016SE72639

PATIENT
  Age: 551 Month
  Sex: Male

DRUGS (17)
  1. FENOTEROL [Concomitant]
     Active Substance: FENOTEROL
     Indication: DYSPNOEA
     Dates: start: 20160526, end: 20160714
  2. OXYCODONE/NALOXONE [Concomitant]
     Active Substance: NALOXONE HYDROCHLORIDE\OXYCODONE HYDROCHLORIDE
     Indication: ANTIBIOTIC THERAPY
     Dates: start: 20160407, end: 20160713
  3. BENPROPERINE [Concomitant]
     Active Substance: BENPROPERINE
     Indication: DYSPNOEA
     Dates: start: 20151231, end: 20160714
  4. LEVOFLOXACIN. [Concomitant]
     Active Substance: LEVOFLOXACIN
     Indication: ANTIBIOTIC THERAPY
     Dates: start: 20160628, end: 20160629
  5. ACETYLCYSTEINE. [Concomitant]
     Active Substance: ACETYLCYSTEINE
     Indication: DYSPNOEA
     Dates: start: 20160609
  6. PIPERACILLIN AND TAZOBACTAM [Concomitant]
     Active Substance: PIPERACILLIN SODIUM\TAZOBACTAM SODIUM
     Indication: ANTIBIOTIC THERAPY
     Dates: start: 20160628, end: 20160629
  7. TAGRISSO [Suspect]
     Active Substance: OSIMERTINIB
     Indication: NON-SMALL CELL LUNG CANCER
     Route: 048
     Dates: start: 20160610, end: 20160712
  8. CEFDITOREN [Concomitant]
     Active Substance: CEFDITOREN
     Indication: ANTIBIOTIC THERAPY
     Dates: start: 20160620
  9. MEGESTROL [Concomitant]
     Active Substance: MEGESTROL
     Indication: DECREASED APPETITE
     Dates: start: 20160612
  10. FENOTEROL [Concomitant]
     Active Substance: FENOTEROL
     Indication: BRONCHIAL DISORDER
     Dates: start: 20160526, end: 20160714
  11. TAGRISSO [Suspect]
     Active Substance: OSIMERTINIB
     Indication: NON-SMALL CELL LUNG CANCER
     Route: 048
     Dates: start: 20160729
  12. BENPROPERINE [Concomitant]
     Active Substance: BENPROPERINE
     Indication: ANTITUSSIVE THERAPY
     Dates: start: 20151231, end: 20160714
  13. THEOBROMINE [Concomitant]
     Active Substance: THEOBROMINE
     Indication: DYSPNOEA
     Dates: start: 20160526, end: 20160714
  14. OXYCODONE/NALOXONE [Concomitant]
     Active Substance: NALOXONE HYDROCHLORIDE\OXYCODONE HYDROCHLORIDE
     Indication: DYSPNOEA
     Dates: start: 20160407, end: 20160713
  15. LANSOPRAZOLE. [Concomitant]
     Active Substance: LANSOPRAZOLE
     Indication: GASTRITIS
     Dates: start: 20160607
  16. THEOBROMINE [Concomitant]
     Active Substance: THEOBROMINE
     Indication: ANTITUSSIVE THERAPY
     Dates: start: 20160526, end: 20160714
  17. CEFCAPENE [Concomitant]
     Active Substance: CEFCAPENE
     Indication: ANTIBIOTIC THERAPY
     Dates: start: 20160620

REACTIONS (1)
  - Pneumonia fungal [Recovered/Resolved]

NARRATIVE: CASE EVENT DATE: 20160627
